FAERS Safety Report 23410281 (Version 1)
Quarter: 2024Q1

REPORT INFORMATION
  Report Type: Spontaneous
  Country: US (occurrence: None)
  Receive Date: 20240116
  Receipt Date: 20240116
  Transmission Date: 20240409
  Serious: Yes (Hospitalization)
  Sender: FDA-Public Use
  Company Number: None

PATIENT
  Sex: Female

DRUGS (3)
  1. PULMOZYME [Suspect]
     Active Substance: DORNASE ALFA
     Indication: Cystic fibrosis
     Dosage: FREQUENCY : DAILY;?
     Route: 055
     Dates: start: 202301
  2. SODIUM CHLOR INH SOLN [Concomitant]
  3. COLISTIMETHATE SOD [Concomitant]

REACTIONS (1)
  - Emergency care [None]
